FAERS Safety Report 14337904 (Version 8)
Quarter: 2018Q4

REPORT INFORMATION
  Report Type: Spontaneous
  Country: DE (occurrence: DE)
  Receive Date: 20171229
  Receipt Date: 20181001
  Transmission Date: 20190204
  Serious: Yes (Other)
  Sender: FDA-Public Use
  Company Number: DE-TEVA-2017-DE-837834

PATIENT
  Age: 36 Year
  Sex: Female
  Weight: 84 kg

DRUGS (7)
  1. ENBREL [Suspect]
     Active Substance: ETANERCEPT
     Route: 065
     Dates: start: 20160913, end: 20170304
  2. TIABENDAZOLE [Concomitant]
     Active Substance: THIABENDAZOLE
     Indication: PSORIASIS
     Dosage: UNK UNK, PRN
     Dates: start: 20161122, end: 20170110
  3. AMOXICILLIN W/CLAVULANIC ACID [Suspect]
     Active Substance: AMOXICILLIN\CLAVULANIC ACID
     Indication: BRONCHITIS
     Dosage: 2 GRAM DAILY; S
     Route: 048
     Dates: start: 20170113, end: 20170115
  4. BETAMETHASONE. [Concomitant]
     Active Substance: BETAMETHASONE
     Indication: PSORIASIS
     Dosage: 1 %, PRN
     Dates: start: 20161122, end: 20170115
  5. ENBREL [Suspect]
     Active Substance: ETANERCEPT
     Indication: PSORIATIC ARTHROPATHY
     Dosage: 50 MG, Z (ONCE PER WEEK)
     Route: 065
     Dates: start: 20160913, end: 20170113
  6. ENBREL [Suspect]
     Active Substance: ETANERCEPT
     Indication: PSORIASIS
     Dosage: 50 MG, Z (WE)
     Route: 065
     Dates: start: 20170225, end: 20170904
  7. MAGISTRAL [Concomitant]
     Indication: PSORIASIS
     Dosage: AS NEEDED
     Dates: start: 20161122, end: 20170110

REACTIONS (4)
  - Bronchitis [Recovered/Resolved]
  - Rash maculo-papular [Recovered/Resolved]
  - Rash generalised [Recovered/Resolved]
  - Drug hypersensitivity [Recovered/Resolved]

NARRATIVE: CASE EVENT DATE: 20170113
